FAERS Safety Report 11135494 (Version 1)
Quarter: 2015Q2

REPORT INFORMATION
  Report Type: Spontaneous
  Country: US (occurrence: None)
  Receive Date: 20150522
  Receipt Date: 20150522
  Transmission Date: 20150821
  Serious: No
  Sender: FDA-Public Use
  Company Number: None

PATIENT
  Age: 80 Year
  Sex: Female
  Weight: 81.65 kg

DRUGS (7)
  1. KLOR-CON? [Concomitant]
  2. TIKOSYN [Suspect]
     Active Substance: DOFETILIDE
     Indication: ATRIAL FIBRILLATION
     Dosage: 1 CAPSULE, TWICE DAILY, TAKEN BY MOUTH
     Route: 048
     Dates: start: 20131211, end: 20150521
  3. VITAMIN D [Concomitant]
     Active Substance: CHOLECALCIFEROL
  4. MAGOX [Concomitant]
  5. PRADAXA [Concomitant]
     Active Substance: DABIGATRAN ETEXILATE MESYLATE
  6. MULTI VITIAMINS [Concomitant]
  7. PREVACID [Concomitant]
     Active Substance: LANSOPRAZOLE

REACTIONS (2)
  - Drug dose omission [None]
  - Physical product label issue [None]

NARRATIVE: CASE EVENT DATE: 20150521
